FAERS Safety Report 6881391-9 (Version None)
Quarter: 2010Q3

REPORT INFORMATION
  Report Type: 
  Country: None (occurrence: None)
  Receive Date: 20100728
  Receipt Date: 20100728
  Transmission Date: 20110219
  Serious: Yes (Hospitalization)
  Sender: FDA-Public Use
  Company Number: None

PATIENT
  Sex: Male
  Weight: 86.637 kg

DRUGS (1)
  1. TEMOZOLOMIDE [Suspect]
     Indication: GLIOBLASTOMA
     Dosage: 185MG (100MG/M^2) DAILY 21 DAYS/28DYS PO
     Route: 048
     Dates: start: 20090319, end: 20090702

REACTIONS (3)
  - CONVULSION [None]
  - CRANIOTOMY [None]
  - MALIGNANT NEOPLASM PROGRESSION [None]
